FAERS Safety Report 7429589-5 (Version None)
Quarter: 2011Q2

REPORT INFORMATION
  Report Type: 
  Country: None (occurrence: None)
  Receive Date: 20110421
  Receipt Date: 20110414
  Transmission Date: 20111010
  Serious: Yes (Hospitalization)
  Sender: FDA-Public Use
  Company Number: B0692349A

PATIENT
  Sex: Female

DRUGS (3)
  1. ARIXTRA [Suspect]
     Indication: THROMBOSIS PROPHYLAXIS
     Dosage: 2.5MG PER DAY
     Route: 058
     Dates: start: 20101122
  2. UMULINE [Concomitant]
     Indication: INSULIN-REQUIRING TYPE 2 DIABETES MELLITUS
     Dosage: 25IU PER DAY
     Route: 058
     Dates: start: 20101122
  3. LEVEMIR [Concomitant]
     Indication: INSULIN-REQUIRING TYPE 2 DIABETES MELLITUS
     Dosage: 6IU PER DAY
     Route: 058
     Dates: start: 20101122

REACTIONS (7)
  - ANAEMIA [None]
  - ULCER HAEMORRHAGE [None]
  - MALAISE [None]
  - HYPOTENSION [None]
  - HAEMATEMESIS [None]
  - PALLOR [None]
  - VOMITING [None]
